FAERS Safety Report 9825347 (Version 2)
Quarter: 2014Q1

REPORT INFORMATION
  Report Type: Spontaneous
  Country: US (occurrence: US)
  Receive Date: 20140117
  Receipt Date: 20140204
  Transmission Date: 20141002
  Serious: No
  Sender: FDA-Public Use
  Company Number: US-PFIZER INC-2014015903

PATIENT
  Age: 50 Year
  Sex: Female

DRUGS (7)
  1. ZOLOFT [Suspect]
     Indication: FIBROMYALGIA
     Dosage: 25 MG, DAILY
     Route: 048
     Dates: start: 20020624
  2. ZOLOFT [Suspect]
     Dosage: 50 MG, DAILY
     Route: 048
     Dates: end: 20020705
  3. SAVELLA [Suspect]
     Indication: FIBROMYALGIA
     Dosage: TITRATION PACK, DAILY
     Route: 048
     Dates: start: 20090821, end: 20090830
  4. FLEXERIL [Concomitant]
     Dosage: 10 MG, TID PRN
  5. SINGULAIR [Concomitant]
     Dosage: 10 MG, HS
  6. AMBIEN [Concomitant]
     Dosage: 10 MG, HS
  7. PROTONIX [Concomitant]
     Dosage: 40 MG, DAILY

REACTIONS (4)
  - Drug hypersensitivity [Recovered/Resolved]
  - Urticaria [Recovered/Resolved]
  - Palpitations [Recovered/Resolved]
  - Flushing [Recovered/Resolved]
